FAERS Safety Report 10217295 (Version 1)
Quarter: 2014Q2

REPORT INFORMATION
  Report Type: Spontaneous
  Country: US (occurrence: US)
  Receive Date: 20140604
  Receipt Date: 20140604
  Transmission Date: 20141212
  Serious: No
  Sender: FDA-Public Use
  Company Number: US-TEVA-483382USA

PATIENT
  Sex: Male

DRUGS (3)
  1. DIAMOX [Suspect]
     Indication: DEAFNESS
     Dosage: 500 MILLIGRAM DAILY;
     Dates: start: 20131210
  2. DIAMOX [Suspect]
     Indication: DIZZINESS
  3. NIASPAN (COATED, EXTENDED RELEASE) [Suspect]
     Indication: EAR DISORDER
     Dosage: 500 MILLIGRAM DAILY;
     Dates: start: 20131108, end: 20131212

REACTIONS (4)
  - Abdominal pain upper [Recovered/Resolved]
  - Renal pain [Recovered/Resolved]
  - Nausea [Recovered/Resolved]
  - Vomiting [Recovered/Resolved]
